FAERS Safety Report 9061275 (Version 1)
Quarter: 2013Q1

REPORT INFORMATION
  Report Type: Spontaneous
  Country: US (occurrence: None)
  Receive Date: 20130208
  Receipt Date: 20130208
  Transmission Date: 20140127
  Serious: Yes (Other)
  Sender: FDA-Public Use
  Company Number: None

PATIENT
  Age: 74 Year
  Sex: Female
  Weight: 52.62 kg

DRUGS (1)
  1. IRINOTECAN [Suspect]
     Indication: LUNG NEOPLASM MALIGNANT
     Dosage: IVSS
     Route: 042
     Dates: start: 20130115, end: 20130122

REACTIONS (2)
  - Chills [None]
  - Oxygen saturation decreased [None]
